FAERS Safety Report 10935402 (Version 1)
Quarter: 2015Q1

REPORT INFORMATION
  Report Type: Spontaneous
  Country: DE (occurrence: DE)
  Receive Date: 20150320
  Receipt Date: 20150320
  Transmission Date: 20150721
  Serious: Yes (Other)
  Sender: FDA-Public Use
  Company Number: DE-ALLERGAN-1504681US

PATIENT
  Age: 87 Year
  Sex: Male

DRUGS (4)
  1. BEPANTHEN [Concomitant]
     Active Substance: DEXPANTHENOL
  2. FUCITHALMIC [Concomitant]
     Active Substance: FUSIDIC ACID
  3. HYLO [Concomitant]
  4. INFLANEFRAN FORTE, 10 MG/ML AUGENTROPFEN [Suspect]
     Active Substance: PREDNISOLONE ACETATE
     Indication: PRODUCT USED FOR UNKNOWN INDICATION
     Dosage: UNK
     Route: 047
     Dates: start: 20141210, end: 201501

REACTIONS (4)
  - Eye irritation [Unknown]
  - Injury corneal [Unknown]
  - Corneal transplant [None]
  - Surgical procedure repeated [None]

NARRATIVE: CASE EVENT DATE: 20141210
